FAERS Safety Report 5277100-X (Version None)
Quarter: 2007Q1

REPORT INFORMATION
  Report Type: 
  Country: None (occurrence: None)
  Receive Date: 20070327
  Receipt Date: 20070321
  Transmission Date: 20070707
  Serious: Yes (Hospitalization)
  Sender: FDA-Public Use
  Company Number: BE-GLAXOSMITHKLINE-B0458806A

PATIENT
  Age: 48 Year
  Sex: Male
  Weight: 75 kg

DRUGS (1)
  1. LAMOTRIGINE [Suspect]
     Route: 048
     Dates: start: 20070125, end: 20070208

REACTIONS (7)
  - BURNING SENSATION [None]
  - ERYTHEMA [None]
  - EYELID OEDEMA [None]
  - RASH [None]
  - RASH GENERALISED [None]
  - RASH MACULAR [None]
  - TOXIC SKIN ERUPTION [None]
